FAERS Safety Report 5904992-0 (Version None)
Quarter: 2008Q3

REPORT INFORMATION
  Report Type: 
  Country: None (occurrence: None)
  Receive Date: 20080909
  Receipt Date: 20080624
  Transmission Date: 20090109
  Serious: Yes (Life-Threatening, Disabling)
  Sender: FDA-Public Use
  Company Number: 163-20785-08041497

PATIENT
  Age: 74 Year
  Sex: Female
  Weight: 78.9259 kg

DRUGS (17)
  1. THALOMID [Suspect]
     Indication: AMYLOIDOSIS
     Dosage: 200 MG, 2 IN 1 D, ORAL ; 100 MG, 1 IN 1 D, ORAL
     Route: 048
     Dates: start: 20080324, end: 20080401
  2. THALOMID [Suspect]
     Indication: AMYLOIDOSIS
     Dosage: 200 MG, 2 IN 1 D, ORAL ; 100 MG, 1 IN 1 D, ORAL
     Route: 048
     Dates: start: 20080428
  3. COUMADIN (WAFARIN SODIUM) (TABLETS) [Concomitant]
  4. TENORMIN [Concomitant]
  5. LOPID [Concomitant]
  6. LISINOPRIL [Concomitant]
  7. LOW DOSE ASPIRIN (ACETYLSALICYLIC ACID) (TABLETS) [Concomitant]
  8. ULTRAM [Concomitant]
  9. CALTRATE-600 (CALCITE D) [Concomitant]
  10. HYDROCHLOROTHIAZIDE [Concomitant]
  11. DOCUSATE CALCIUM (DOCUSATE CALCIUM) (CAPSULES) [Concomitant]
  12. SYNTHROID (LEVOTHYROXINE SODIUM) (TABLETS) [Concomitant]
  13. VITAMIN B6 [Concomitant]
  14. CENTRUM SILVER (CENTRUM SILVER) [Concomitant]
  15. NEXIUM [Concomitant]
  16. CRANBERRY EXTRACT (BIO-ORGANICS CRANBERRY 10000) [Concomitant]
  17. SANCTURA [Concomitant]

REACTIONS (3)
  - DIZZINESS [None]
  - PROTEINURIA [None]
  - TINNITUS [None]
